FAERS Safety Report 5325318-X (Version None)
Quarter: 2007Q2

REPORT INFORMATION
  Report Type: 
  Country: None (occurrence: None)
  Receive Date: 20070515
  Receipt Date: 20070504
  Transmission Date: 20071010
  Serious: Yes (Death, Other)
  Sender: FDA-Public Use
  Company Number: GB-ASTRAZENECA-2006GB01326

PATIENT
  Age: 63 Year
  Sex: Female

DRUGS (13)
  1. OMEPRAZOLE [Suspect]
     Route: 048
  2. CITALOPRAM HYDROBROMIDE [Suspect]
     Route: 048
  3. PERINDOPRIL [Suspect]
     Indication: HYPERTENSION
     Route: 048
  4. ADIZEM-SR [Concomitant]
  5. BECOTIDE [Concomitant]
  6. FRUSEMIDE [Concomitant]
  7. SALBUTAMOL [Concomitant]
  8. SENNA [Concomitant]
  9. VITAMIN B COMPLEX CAP [Concomitant]
  10. OLANZAPINE [Concomitant]
  11. PARACETAMOL [Concomitant]
  12. THIAMINE [Concomitant]
  13. CILINUTREN DRINK [Concomitant]

REACTIONS (2)
  - LARYNGEAL OEDEMA [None]
  - SWELLING FACE [None]
